FAERS Safety Report 12456477 (Version 1)
Quarter: 2016Q2

REPORT INFORMATION
  Report Type: Spontaneous
  Country: NL (occurrence: NL)
  Receive Date: 20160610
  Receipt Date: 20160610
  Transmission Date: 20160815
  Serious: Yes (Congenital Anomaly)
  Sender: FDA-Public Use
  Company Number: NL-JNJFOC-20160605965

PATIENT
  Age: 0 Day
  Sex: Female
  Weight: 3.2 kg

DRUGS (2)
  1. FOLIUMZUUR [Concomitant]
     Active Substance: FOLIC ACID
     Indication: PRODUCT USED FOR UNKNOWN INDICATION
     Route: 064
  2. ZALDIAR [Suspect]
     Active Substance: ACETAMINOPHEN\TRAMADOL HYDROCHLORIDE
     Indication: PAIN
     Dosage: MOTHER DOSING: 3 - 6 DOSES
     Route: 064
     Dates: start: 20150101

REACTIONS (2)
  - Foetal exposure during pregnancy [Recovered/Resolved]
  - Congenital hand malformation [Not Recovered/Not Resolved]

NARRATIVE: CASE EVENT DATE: 20160511
